FAERS Safety Report 4752959-0 (Version None)
Quarter: 2005Q3

REPORT INFORMATION
  Report Type: 
  Country: None (occurrence: None)
  Receive Date: 20050825
  Receipt Date: 20050809
  Transmission Date: 20060218
  Serious: Yes (Death)
  Sender: FDA-Public Use
  Company Number: P200500016

PATIENT
  Sex: Male

DRUGS (1)
  1. PLENAXIS [Suspect]
     Indication: PROSTATE CANCER
     Dosage: 100 MG, INTRAMUSCULAR
     Route: 030

REACTIONS (1)
  - DEATH [None]
